FAERS Safety Report 15843208 (Version 2)
Quarter: 2019Q1

REPORT INFORMATION
  Report Type: Report from Study
  Country: US (occurrence: US)
  Receive Date: 20190118
  Receipt Date: 20190128
  Transmission Date: 20190417
  Serious: Yes (Hospitalization)
  Sender: FDA-Public Use
  Company Number: US-PFIZER INC-2019016561

PATIENT
  Age: 81 Year
  Sex: Female
  Weight: 60.3 kg

DRUGS (1)
  1. CRIZOTINIB [Suspect]
     Active Substance: CRIZOTINIB
     Indication: NON-SMALL CELL LUNG CANCER
     Dosage: 250 MG CAPS, TWICE DAILY
     Dates: start: 20180112, end: 20190107

REACTIONS (7)
  - Dyspnoea [Recovered/Resolved]
  - Hypertension [Recovered/Resolved]
  - Neutrophil count decreased [Recovered/Resolved]
  - Dehydration [Recovered/Resolved]
  - Vomiting [Recovered/Resolved]
  - Fatigue [Recovered/Resolved]
  - Diarrhoea [Recovered/Resolved]

NARRATIVE: CASE EVENT DATE: 20190108
